FAERS Safety Report 8923191 (Version 2)
Quarter: 2013Q1

REPORT INFORMATION
  Report Type: Report from Study
  Country: CN (occurrence: CN)
  Receive Date: 20121123
  Receipt Date: 20130327
  Transmission Date: 20140127
  Serious: Yes (Other)
  Sender: FDA-Public Use
  Company Number: CN-ROCHE-1159232

PATIENT
  Age: 54 Year
  Sex: Male

DRUGS (2)
  1. PEGASYS [Suspect]
     Indication: HEPATITIS C
     Route: 058
     Dates: start: 20111126, end: 20121110
  2. PEGASYS [Suspect]
     Route: 058
     Dates: start: 20121117

REACTIONS (2)
  - Hepatic fibrosis [Unknown]
  - Neutrophil count decreased [Recovered/Resolved]
